FAERS Safety Report 19973971 (Version 1)
Quarter: 2021Q4

REPORT INFORMATION
  Report Type: Spontaneous
  Country: US (occurrence: US)
  Receive Date: 20211020
  Receipt Date: 20211020
  Transmission Date: 20220303
  Serious: No
  Sender: FDA-Public Use
  Company Number: None

PATIENT
  Sex: Female

DRUGS (2)
  1. COPAXONE [Suspect]
     Active Substance: GLATIRAMER ACETATE
     Indication: Multiple sclerosis
     Dosage: ?          OTHER FREQUENCY:3X PER WEEK;
     Route: 058
     Dates: start: 20180307
  2. MODAFINIL [Concomitant]
     Active Substance: MODAFINIL

REACTIONS (1)
  - Product dose omission issue [None]
